FAERS Safety Report 7131583-9 (Version None)
Quarter: 2010Q4

REPORT INFORMATION
  Report Type: 
  Country: None (occurrence: None)
  Receive Date: 20101201
  Receipt Date: 20101119
  Transmission Date: 20110411
  Serious: Yes (Hospitalization)
  Sender: FDA-Public Use
  Company Number: AU-PFIZER INC-2010153922

PATIENT
  Age: 54 Year
  Sex: Female

DRUGS (2)
  1. PRISTIQ [Suspect]
     Dosage: 50 MG, UNK
     Dates: start: 20090501, end: 20101001
  2. PRISTIQ [Suspect]
     Dosage: 100 MG, UNK
     Dates: start: 20101001, end: 20101101

REACTIONS (5)
  - DIARRHOEA [None]
  - DRUG WITHDRAWAL SYNDROME [None]
  - HYPERSOMNIA [None]
  - NAUSEA [None]
  - VOMITING [None]
